FAERS Safety Report 5261709-3 (Version None)
Quarter: 2007Q1

REPORT INFORMATION
  Report Type: 
  Country: None (occurrence: None)
  Receive Date: 20070308
  Receipt Date: 20070227
  Transmission Date: 20070707
  Serious: Yes (Hospitalization)
  Sender: FDA-Public Use
  Company Number: 153402USA

PATIENT
  Age: 68 Year
  Sex: Male
  Weight: 100.2449 kg

DRUGS (3)
  1. FLUOROURACIL [Suspect]
     Indication: PANCREATIC NEOPLASM
     Dosage: 200 MG/M2, INTRAVENOUS
     Route: 042
     Dates: start: 20060411, end: 20070130
  2. FOLINIC ACID [Suspect]
  3. BEVACIZUMAB [Suspect]
     Indication: PANCREATIC NEOPLASM
     Dosage: 5 MG/KG, INTRAVENOUS
     Route: 042
     Dates: start: 20060411, end: 20070130

REACTIONS (2)
  - DIARRHOEA [None]
  - HYPOGLYCAEMIA [None]
